FAERS Safety Report 5404502-0 (Version None)
Quarter: 2007Q3

REPORT INFORMATION
  Report Type: 
  Country: None (occurrence: None)
  Receive Date: 20070730
  Receipt Date: 20070719
  Transmission Date: 20080115
  Serious: Yes (Other)
  Sender: FDA-Public Use
  Company Number: B0480753A

PATIENT
  Age: 42 Year
  Sex: Male

DRUGS (3)
  1. LAMIVUDINE [Suspect]
     Indication: HIV INFECTION
     Dates: start: 20040501
  2. STAVUDINE [Suspect]
     Indication: HIV INFECTION
     Dates: start: 20040501
  3. NEVIRAPINE [Suspect]
     Indication: HIV INFECTION
     Dates: start: 20040501

REACTIONS (6)
  - CD4 LYMPHOCYTES DECREASED [None]
  - HAEMOGLOBIN DECREASED [None]
  - HEPATOMEGALY [None]
  - IMMUNE RECONSTITUTION SYNDROME [None]
  - VISCERAL LEISHMANIASIS [None]
  - WHITE BLOOD CELL COUNT DECREASED [None]
